FAERS Safety Report 8660030 (Version 6)
Quarter: 2012Q4

REPORT INFORMATION
  Report Type: 
  Country: US (occurrence: US)
  Receive Date: 20120711
  Receipt Date: 20121003
  Transmission Date: 20130627
  Serious: Yes (Disabling)
  Sender: FDA-Public Use
  Company Number: US-PFIZER INC-2012164351

PATIENT
  Age: 55 Year
  Sex: Female
  Weight: 90.7 kg

DRUGS (13)
  1. XANAX [Suspect]
     Indication: ANXIETY
     Dosage: 0.25 mg, UNK
     Route: 048
  2. XANAX [Suspect]
     Dosage: 0.5 mg, UNK
     Route: 048
  3. XANAX [Suspect]
     Dosage: 1 mg, UNK
     Route: 048
  4. XANAX [Suspect]
     Dosage: 2 mg, UNK
     Route: 048
  5. XANAX [Suspect]
     Dosage: 3 mg, taking 1 and a half tablet of 2 mg alprazolam
     Route: 048
  6. XANAX [Suspect]
     Dosage: 2 mg tablets into half and taking 1 and half tablet three times a day
     Route: 048
  7. ALPRAZOLAM [Suspect]
     Indication: ANXIETY
     Dosage: 3 mg (1 and half tablets of 2mg) , 3x/day
     Route: 048
     Dates: start: 20120706, end: 2012
  8. ALPRAZOLAM [Suspect]
     Indication: ATTENTION DEFICIT/HYPERACTIVITY DISORDER
     Dosage: 1 mg, 3x/day
     Route: 048
     Dates: start: 2012, end: 2012
  9. ALPRAZOLAM [Suspect]
     Dosage: 3 mg, 3x/day
     Route: 048
     Dates: start: 2012
  10. TRICOR [Concomitant]
     Indication: BLOOD VISCOSITY INCREASED
     Dosage: 25 mg, daily
     Route: 048
  11. TRICOR [Concomitant]
     Indication: BLOOD TRIGLYCERIDES
     Dosage: 10 mg, daily
     Route: 048
  12. TRICOR [Concomitant]
     Indication: BLOOD CHOLESTEROL ABNORMAL
  13. ZOCOR [Concomitant]
     Indication: BLOOD CHOLESTEROL INCREASED
     Dosage: UNK

REACTIONS (11)
  - Intervertebral disc disorder [Not Recovered/Not Resolved]
  - Anxiety [Not Recovered/Not Resolved]
  - Drug ineffective for unapproved indication [Not Recovered/Not Resolved]
  - Panic attack [Unknown]
  - Emotional disorder [Not Recovered/Not Resolved]
  - Agitation [Not Recovered/Not Resolved]
  - Crying [Not Recovered/Not Resolved]
  - Feeling abnormal [Not Recovered/Not Resolved]
  - Palpitations [Not Recovered/Not Resolved]
  - Drug ineffective [Unknown]
  - Off label use [Unknown]
